FAERS Safety Report 17084754 (Version 4)
Quarter: 2020Q4

REPORT INFORMATION
  Report Type: Spontaneous
  Country: US (occurrence: US)
  Receive Date: 20191127
  Receipt Date: 20201209
  Transmission Date: 20210113
  Serious: No
  Sender: FDA-Public Use
  Company Number: US-INCYTE CORPORATION-2019IN010976

PATIENT

DRUGS (3)
  1. JAKAFI [Suspect]
     Active Substance: RUXOLITINIB
     Dosage: 10 MILLIGRAM, QOD
     Route: 048
     Dates: start: 20190805
  2. JAKAFI [Suspect]
     Active Substance: RUXOLITINIB
     Dosage: 10 MILLIGRAM, EVERY OTHER DAY
     Route: 048
     Dates: start: 20190805
  3. JAKAFI [Suspect]
     Active Substance: RUXOLITINIB
     Indication: POLYCYTHAEMIA VERA
     Dosage: 10 MILLIGRAM, BID
     Route: 048
     Dates: start: 20190805

REACTIONS (10)
  - Haemoglobin abnormal [Unknown]
  - Haemoglobin decreased [Unknown]
  - Blood count abnormal [Unknown]
  - Decreased activity [Unknown]
  - Emotional disorder [Unknown]
  - Feeling abnormal [Unknown]
  - Asthenia [Unknown]
  - Visual impairment [Unknown]
  - Intentional product use issue [Unknown]
  - Red blood cell count decreased [Unknown]
